FAERS Safety Report 5694327-3 (Version None)
Quarter: 2008Q2

REPORT INFORMATION
  Report Type: 
  Country: None (occurrence: None)
  Receive Date: 20080402
  Receipt Date: 20080326
  Transmission Date: 20081010
  Serious: Yes (Death)
  Sender: FDA-Public Use
  Company Number: 2008SP005994

PATIENT
  Age: 30 Year
  Sex: Female

DRUGS (2)
  1. TEMODAL [Suspect]
     Indication: GLIOBLASTOMA
     Dosage: 150 MG/M2;QD;PO
     Route: 048
     Dates: start: 20070801
  2. CCNU [Concomitant]

REACTIONS (2)
  - NEOPLASM RECURRENCE [None]
  - THROMBOCYTOPENIA [None]
